FAERS Safety Report 7102902-4 (Version None)
Quarter: 2010Q4

REPORT INFORMATION
  Report Type: 
  Country: None (occurrence: None)
  Receive Date: 20101115
  Receipt Date: 20101104
  Transmission Date: 20110411
  Serious: Yes (Hospitalization)
  Sender: FDA-Public Use
  Company Number: AT-JNJFOC-20101101355

PATIENT
  Age: 73 Year
  Sex: Female
  Weight: 64 kg

DRUGS (4)
  1. RISPERDAL CONSTA [Suspect]
     Indication: SCHIZOPHRENIA
     Route: 030
  2. LASIX [Concomitant]
     Indication: OEDEMA PERIPHERAL
  3. NITOMAN [Concomitant]
     Indication: DYSKINESIA
  4. TEMESTA [Concomitant]
     Indication: RESTLESSNESS

REACTIONS (3)
  - ABASIA [None]
  - ELECTROCARDIOGRAM QT PROLONGED [None]
  - EXTRAPYRAMIDAL DISORDER [None]
